FAERS Safety Report 8409226-3 (Version None)
Quarter: 2012Q2

REPORT INFORMATION
  Report Type: 
  Country: None (occurrence: None)
  Receive Date: 20120604
  Receipt Date: 20120522
  Transmission Date: 20120825
  Serious: Yes (Other)
  Sender: FDA-Public Use
  Company Number: JP-ROCHE-1072103

PATIENT
  Sex: Male

DRUGS (2)
  1. MIRCERA [Suspect]
     Dosage: IT INCREASES IT TO 75MCG TO 250MCG OR LESS.
     Route: 042
  2. MIRCERA [Suspect]
     Indication: NEPHROGENIC ANAEMIA
     Route: 042
     Dates: start: 20111101

REACTIONS (1)
  - MYELODYSPLASTIC SYNDROME [None]
